FAERS Safety Report 10167933 (Version 1)
Quarter: 2014Q2

REPORT INFORMATION
  Report Type: Spontaneous
  Country: ES (occurrence: ES)
  Receive Date: 20140512
  Receipt Date: 20140512
  Transmission Date: 20141212
  Serious: Yes (Other)
  Sender: FDA-Public Use
  Company Number: ES-PFIZER INC-2014126789

PATIENT
  Age: 63 Year
  Sex: Male

DRUGS (1)
  1. ACOVIL [Suspect]
     Indication: HYPERTENSION
     Dosage: 10 MG, DAILY
     Route: 048
     Dates: start: 20130903, end: 20140307

REACTIONS (3)
  - Dysphagia [Unknown]
  - Hyperaemia [Unknown]
  - Lip swelling [Unknown]
